FAERS Safety Report 11893873 (Version 3)
Quarter: 2016Q1

REPORT INFORMATION
  Report Type: Spontaneous
  Country: US (occurrence: US)
  Receive Date: 20160107
  Receipt Date: 20160304
  Transmission Date: 20160526
  Serious: No
  Sender: FDA-Public Use
  Company Number: US-ASTRAZENECA-2016SE00789

PATIENT
  Age: 74 Year
  Sex: Female
  Weight: 68.4 kg

DRUGS (1)
  1. NEXIUM 24HR [Suspect]
     Active Substance: ESOMEPRAZOLE MAGNESIUM
     Indication: DYSPEPSIA
     Route: 048
     Dates: start: 20150914, end: 20150928

REACTIONS (2)
  - Disease recurrence [Not Recovered/Not Resolved]
  - Dyspepsia [Not Recovered/Not Resolved]
